FAERS Safety Report 9332595 (Version 2)
Quarter: 2013Q3

REPORT INFORMATION
  Report Type: Spontaneous
  Country: US (occurrence: US)
  Receive Date: 20130606
  Receipt Date: 20130723
  Transmission Date: 20140515
  Serious: Yes (Hospitalization, Disabling)
  Sender: FDA-Public Use
  Company Number: US-CELGENEUS-163-21880-13060170

PATIENT
  Age: 67 Year
  Sex: Male

DRUGS (6)
  1. REVLIMID [Suspect]
     Indication: MYELODYSPLASTIC SYNDROME
     Dosage: 5 MILLIGRAM
     Route: 048
     Dates: start: 20130520, end: 20130526
  2. FLUCONAZOLE [Concomitant]
     Indication: ANTIBIOTIC PROPHYLAXIS
     Route: 065
  3. LEVAQUIN [Concomitant]
     Indication: ANTIBIOTIC PROPHYLAXIS
     Route: 065
  4. ACYCLOVIR [Concomitant]
     Indication: ANTIBIOTIC PROPHYLAXIS
     Route: 065
  5. EPOGEN [Concomitant]
     Indication: MYELODYSPLASTIC SYNDROME
     Dosage: 40,000 UNITS
     Route: 065
     Dates: start: 20120925
  6. EPOGEN [Concomitant]
     Indication: ANAEMIA
     Route: 065

REACTIONS (2)
  - Pancytopenia [Recovering/Resolving]
  - Febrile neutropenia [Not Recovered/Not Resolved]
